FAERS Safety Report 12883066 (Version 1)
Quarter: 2016Q4

REPORT INFORMATION
  Report Type: Spontaneous
  Country: US (occurrence: US)
  Receive Date: 20161025
  Receipt Date: 20161025
  Transmission Date: 20170207
  Serious: Yes (Other)
  Sender: FDA-Public Use
  Company Number: US-SA-2016SA191181

PATIENT
  Age: 63 Year
  Sex: Female

DRUGS (3)
  1. TOUJEO [Suspect]
     Active Substance: INSULIN GLARGINE
     Indication: TYPE 2 DIABETES MELLITUS
     Dosage: 20-23 UNITS
     Route: 065
     Dates: start: 201610, end: 20161014
  2. SOLOSTAR [Concomitant]
     Active Substance: DEVICE
     Dates: start: 201610, end: 20161014
  3. LANTUS [Concomitant]
     Active Substance: INSULIN GLARGINE

REACTIONS (3)
  - Foot fracture [Unknown]
  - Choking sensation [Unknown]
  - Chest pain [Unknown]

NARRATIVE: CASE EVENT DATE: 201610
